FAERS Safety Report 25809278 (Version 2)
Quarter: 2025Q4

REPORT INFORMATION
  Report Type: Spontaneous
  Country: US (occurrence: US)
  Receive Date: 20250916
  Receipt Date: 20251116
  Transmission Date: 20260118
  Serious: Yes (Hospitalization, Other)
  Sender: SANOFI AVENTIS
  Company Number: US-SA-2025SA267384

PATIENT
  Age: 68 Year
  Sex: Female
  Weight: 61.2 kg

DRUGS (3)
  1. FERRLECIT [Suspect]
     Active Substance: SODIUM FERRIC GLUCONATE COMPLEX
     Indication: Blood iron decreased
     Dosage: 250 MG, QW
     Route: 042
     Dates: start: 20250821, end: 20250904
  2. PREDNISONE [Concomitant]
     Active Substance: PREDNISONE
     Dosage: TAKE 4 TABLETS BY MOUTH IN THE MORNING FOR 5 DAYS
     Route: 048
  3. LORATADINE [Concomitant]
     Active Substance: LORATADINE
     Dosage: TAKE 1 TABLET BY MOUTH IN THE MORNING
     Route: 048

REACTIONS (5)
  - Anaphylactic reaction [Recovered/Resolved]
  - Hyperhidrosis [Recovered/Resolved]
  - Hypotension [Recovered/Resolved]
  - Tunnel vision [Recovered/Resolved]
  - Asthenia [Recovered/Resolved]

NARRATIVE: CASE EVENT DATE: 20250904
